FAERS Safety Report 22332243 (Version 1)
Quarter: 2023Q2

REPORT INFORMATION
  Report Type: Spontaneous
  Country: US (occurrence: None)
  Receive Date: 20230516
  Receipt Date: 20230516
  Transmission Date: 20230721
  Serious: No
  Sender: FDA-Public Use
  Company Number: None

PATIENT
  Age: 66 Year
  Sex: Female
  Weight: 57.6 kg

DRUGS (5)
  1. ERYTHROMYCIN [Suspect]
     Active Substance: ERYTHROMYCIN
     Indication: Chalazion
     Dosage: OTHER STRENGTH : 0.5%;?OTHER QUANTITY : 1 3.5G;?FREQUENCY : EVERY 4 HOURS;?
     Route: 061
     Dates: start: 20220512, end: 20220514
  2. ALENDRONATE SODIUM [Concomitant]
     Active Substance: ALENDRONATE SODIUM
  3. VITAMIN D3 [Concomitant]
     Active Substance: CHOLECALCIFEROL
  4. CALCIUM CARBONATE [Concomitant]
     Active Substance: CALCIUM CARBONATE
  5. MAGNESIUM [Concomitant]
     Active Substance: MAGNESIUM

REACTIONS (4)
  - Swelling face [None]
  - Pruritus [None]
  - Eye pain [None]
  - Recalled product administered [None]

NARRATIVE: CASE EVENT DATE: 20220512
